FAERS Safety Report 4694995-9 (Version None)
Quarter: 2005Q2

REPORT INFORMATION
  Report Type: 
  Country: None (occurrence: None)
  Receive Date: 20050614
  Receipt Date: 20050210
  Transmission Date: 20051028
  Serious: No
  Sender: FDA-Public Use
  Company Number: US_0411107922

PATIENT
  Age: 55 Year
  Sex: Male

DRUGS (4)
  1. CIALIS [Suspect]
  2. ATROVENT [Concomitant]
  3. FLOVENT (FLUTICASTONE PROPIONATE) [Concomitant]
  4. PROVENTIL (SALBUTAMOL SULFATE) [Concomitant]

REACTIONS (1)
  - ANGINA PECTORIS [None]
